FAERS Safety Report 13381370 (Version 1)
Quarter: 2017Q1

REPORT INFORMATION
  Report Type: Spontaneous
  Country: US (occurrence: US)
  Receive Date: 20170328
  Receipt Date: 20170328
  Transmission Date: 20170429
  Serious: No
  Sender: FDA-Public Use
  Company Number: None

PATIENT
  Age: 57 Year
  Sex: Female
  Weight: 63.5 kg

DRUGS (2)
  1. VANCOMYCIN 10 GM FRESENIUS KABI [Suspect]
     Active Substance: VANCOMYCIN HYDROCHLORIDE
     Indication: ENDOCARDITIS
     Route: 042
     Dates: start: 20170214, end: 20170304
  2. VANCOMYCIN 1 GM FRESENIUS KABI USA [Suspect]
     Active Substance: VANCOMYCIN
     Indication: ENDOCARDITIS
     Route: 042
     Dates: start: 20170214, end: 20170304

REACTIONS (3)
  - Oral disorder [None]
  - Body temperature increased [None]
  - Rash [None]

NARRATIVE: CASE EVENT DATE: 20170304
